FAERS Safety Report 4365934-5 (Version None)
Quarter: 2004Q2

REPORT INFORMATION
  Report Type: 
  Country: None (occurrence: None)
  Receive Date: 20040524
  Receipt Date: 20040513
  Transmission Date: 20050107
  Serious: Yes (Other)
  Sender: FDA-Public Use
  Company Number: 8009

PATIENT
  Sex: Female

DRUGS (8)
  1. VINCRISTINE [Suspect]
     Indication: HODGKIN'S DISEASE
  2. DOXORUBICIN HCL [Suspect]
     Indication: HODGKIN'S DISEASE
  3. BLEOMYCIN [Suspect]
     Indication: HODGKIN'S DISEASE
  4. VINBLASTINE SULFATE [Suspect]
     Indication: HODGKIN'S DISEASE
  5. DACARBAZINE [Suspect]
     Indication: HODGKIN'S DISEASE
  6. MECHLORETAMINE [Suspect]
     Indication: HODGKIN'S DISEASE
  7. PREDNISONE [Suspect]
     Indication: HODGKIN'S DISEASE
  8. PROCARBAZINE [Suspect]
     Indication: HODGKIN'S DISEASE

REACTIONS (7)
  - ABORTION INDUCED [None]
  - ANGIOPATHY [None]
  - DRUG EXPOSURE DURING PREGNANCY [None]
  - HEPATOTOXICITY [None]
  - NEONATAL DISORDER [None]
  - NEPHROPATHY TOXIC [None]
  - PLACENTAL DISORDER [None]
